FAERS Safety Report 8822969 (Version 1)
Quarter: 2012Q4

REPORT INFORMATION
  Report Type: 
  Country: US (occurrence: US)
  Receive Date: 20121003
  Receipt Date: 20121003
  Transmission Date: 20130627
  Serious: Yes (Death)
  Sender: FDA-Public Use
  Company Number: US-ROCHE-1131333

PATIENT
  Sex: Male

DRUGS (7)
  1. RITUXAN [Suspect]
     Indication: CHRONIC LYMPHOCYTIC LEUKAEMIA
     Route: 065
     Dates: start: 19981117
  2. CHLORAMBUCIL [Concomitant]
     Route: 065
     Dates: start: 199710
  3. COUMADIN [Concomitant]
     Dosage: 6 mg alternating with 7 mg
     Route: 065
  4. COUMADIN [Concomitant]
     Route: 065
     Dates: start: 19980805
  5. TROVAN [Concomitant]
     Route: 065
  6. PREDNISONE [Concomitant]
     Route: 065
  7. CEFTAZIDIME [Concomitant]
     Route: 065

REACTIONS (1)
  - Death [Fatal]
